FAERS Safety Report 25863827 (Version 1)
Quarter: 2025Q3

REPORT INFORMATION
  Report Type: Spontaneous
  Country: IN (occurrence: IN)
  Receive Date: 20250930
  Receipt Date: 20250930
  Transmission Date: 20251020
  Serious: Yes (Other)
  Sender: AAVIS PHARMACEUTICALS
  Company Number: IN-AVS-000228

PATIENT
  Sex: Female

DRUGS (3)
  1. IVERMECTIN [Suspect]
     Active Substance: IVERMECTIN
     Indication: Filariasis
     Route: 065
  2. ALBENDAZOLE [Suspect]
     Active Substance: ALBENDAZOLE
     Indication: Filariasis
     Route: 065
  3. DIETHYLCARBAMAZINE [Suspect]
     Active Substance: DIETHYLCARBAMAZINE
     Indication: Filariasis
     Route: 065

REACTIONS (2)
  - Lymphangitis [Unknown]
  - Product use in unapproved indication [Unknown]
